FAERS Safety Report 15694820 (Version 1)
Quarter: 2018Q4

REPORT INFORMATION
  Report Type: Spontaneous
  Country: SE (occurrence: SE)
  Receive Date: 20181206
  Receipt Date: 20181206
  Transmission Date: 20190205
  Serious: Yes (Life-Threatening, Hospitalization)
  Sender: FDA-Public Use
  Company Number: SE-MYLANLABS-2018M1088857

PATIENT
  Age: 16 Month
  Sex: Male

DRUGS (5)
  1. ETOPOSIDE. [Suspect]
     Active Substance: ETOPOSIDE
     Indication: NEUROBLASTOMA
     Dosage: INITIALLY ADMINISTERED ON DAY 0 (COURSE A) AND PARTIAL C COURSE ON DAY 20
     Route: 065
  2. CISPLATIN. [Suspect]
     Active Substance: CISPLATIN
     Indication: NEUROBLASTOMA
     Dosage: ADMINISTERED ON DAY 10 DURING COURSE B
     Route: 065
  3. CARBOPLATIN. [Suspect]
     Active Substance: CARBOPLATIN
     Indication: NEUROBLASTOMA
     Dosage: ADMINISTERED ON DAY 0 DURING COURSE A
     Route: 065
  4. VINCRISTINE [Suspect]
     Active Substance: VINCRISTINE
     Indication: NEUROBLASTOMA
     Dosage: INITIALLY ADMINISTERED ON DAY 0 (COURSE A), ON DAY 10 (COURSE B) AND PARTIAL C COURSE ON DAY 20
     Route: 065
  5. CYCLOPHOSPHAMIDE. [Suspect]
     Active Substance: CYCLOPHOSPHAMIDE
     Indication: NEUROBLASTOMA
     Dosage: RECEIVED PARTIAL C COURSE ON DAY 20
     Route: 065

REACTIONS (8)
  - Intestinal haemorrhage [Unknown]
  - Colitis [Unknown]
  - Sepsis [Unknown]
  - Bone marrow toxicity [Recovered/Resolved]
  - Neutropenia [Recovered/Resolved]
  - Respiratory failure [Unknown]
  - Anaemia [Recovered/Resolved]
  - Thrombocytopenia [Recovered/Resolved]
